FAERS Safety Report 8303463-4 (Version None)
Quarter: 2012Q2

REPORT INFORMATION
  Report Type: 
  Country: None (occurrence: None)
  Receive Date: 20120423
  Receipt Date: 20120417
  Transmission Date: 20120825
  Serious: No
  Sender: FDA-Public Use
  Company Number: US-PFIZER INC-2012096146

PATIENT
  Sex: Male
  Weight: 136 kg

DRUGS (2)
  1. DETROL LA [Suspect]
     Indication: RENAL DISORDER
     Dosage: 4 MG, DAILY
  2. DETROL LA [Suspect]
     Indication: URINARY INCONTINENCE

REACTIONS (1)
  - DRUG INEFFECTIVE [None]
